FAERS Safety Report 16902789 (Version 1)
Quarter: 2019Q4

REPORT INFORMATION
  Report Type: Spontaneous
  Country: US (occurrence: US)
  Receive Date: 20190816
  Receipt Date: 20190816
  Transmission Date: 20200122
  Serious: Yes (Death, Other)
  Sender: FDA-Public Use
  Company Number: None

PATIENT
  Age: 54 Year
  Sex: Male
  Weight: 113.7 kg

DRUGS (1)
  1. KYMRIAH [Suspect]
     Active Substance: TISAGENLECLEUCEL
     Indication: LYMPHOMA
     Route: 042
     Dates: start: 20190620

REACTIONS (24)
  - Disease progression [None]
  - Pulmonary mass [None]
  - Coagulopathy [None]
  - CSF glucose increased [None]
  - Lymphoma [None]
  - Neoplasm progression [None]
  - Pyrexia [None]
  - Cytopenia [None]
  - Cerebral infarction [None]
  - CSF lymphocyte count increased [None]
  - Transfusion [None]
  - Neurotoxicity [None]
  - Upper gastrointestinal haemorrhage [None]
  - Multiple organ dysfunction syndrome [None]
  - Hypotension [None]
  - Vasogenic cerebral oedema [None]
  - Cerebral artery stenosis [None]
  - CSF protein increased [None]
  - Bacterial test positive [None]
  - Misleading laboratory test result [None]
  - Acute kidney injury [None]
  - Thrombocytopenia [None]
  - Fungal infection [None]
  - Embolic stroke [None]
